FAERS Safety Report 9812870 (Version 1)
Quarter: 2014Q1

REPORT INFORMATION
  Report Type: Spontaneous
  Country: US (occurrence: US)
  Receive Date: 20140113
  Receipt Date: 20140113
  Transmission Date: 20141002
  Serious: No
  Sender: FDA-Public Use
  Company Number: US-PFIZER INC-2014007380

PATIENT
  Age: 78 Year
  Sex: Female
  Weight: 63.04 kg

DRUGS (7)
  1. EXEMESTANE [Suspect]
     Indication: BREAST CANCER
     Dosage: 25 MG, 1X/DAY
  2. ASPIRIN [Concomitant]
     Dosage: 81 MG, 1X/DAY
  3. HYDROCHLOROTHIAZIDE/TRIAMTERENE [Concomitant]
     Dosage: (TRIAMTERENE 37.5/ HYDROCHLOROTHIAZIDE 25 MG), 1X/DAY
  4. VITAMIN B3 [Concomitant]
     Dosage: 1000 IU, 3X/DAY
  5. SUPER BIO-CURCUMIN [Concomitant]
     Dosage: 400 MG, 1X/DAY
  6. MILK THISTLE [Concomitant]
     Dosage: UNK
  7. ATORVASTATIN [Concomitant]
     Dosage: UNK

REACTIONS (1)
  - Pain [Unknown]
